FAERS Safety Report 25223793 (Version 3)
Quarter: 2025Q4

REPORT INFORMATION
  Report Type: Report from Study
  Country: CA (occurrence: CA)
  Receive Date: 20250422
  Receipt Date: 20251017
  Transmission Date: 20260118
  Serious: Yes (Death, Other)
  Sender: CELLTRION
  Company Number: CA-CELLTRION INC.-2025CA001624

PATIENT

DRUGS (2)
  1. INFLIXIMAB [Suspect]
     Active Substance: INFLIXIMAB
     Indication: Crohn^s disease
     Dosage: 120 MG BI-WEEKLY; 1 EVERY 2 WEEKS
     Route: 058
  2. INFLIXIMAB [Suspect]
     Active Substance: INFLIXIMAB
     Dosage: 120 MG WEEKLY; 1 EVERY 1 WEEKS
     Route: 058
     Dates: start: 20241223

REACTIONS (4)
  - Colon cancer [Fatal]
  - Symptom recurrence [Fatal]
  - Drug ineffective [Fatal]
  - Intentional product use issue [Fatal]

NARRATIVE: CASE EVENT DATE: 20250204
